FAERS Safety Report 16456070 (Version 1)
Quarter: 2019Q2

REPORT INFORMATION
  Report Type: Spontaneous
  Country: DE (occurrence: DE)
  Receive Date: 20190620
  Receipt Date: 20190620
  Transmission Date: 20190711
  Serious: Yes (Other)
  Sender: FDA-Public Use
  Company Number: DE-GLAXOSMITHKLINE-DE2019110737

PATIENT
  Age: 31 Year
  Sex: Female
  Weight: 58 kg

DRUGS (1)
  1. DUAC [Suspect]
     Active Substance: BENZOYL PEROXIDE\CLINDAMYCIN PHOSPHATE
     Indication: PRODUCT USED FOR UNKNOWN INDICATION
     Dosage: ACCORDING TO INSTRUCTIONS: PEA-SIZED AMOUNT APPLIED FLAT ON THE FACE
     Route: 061
     Dates: start: 20190204, end: 20190205

REACTIONS (6)
  - Lip swelling [Recovered/Resolved]
  - Larynx irritation [Recovered/Resolved]
  - Skin exfoliation [Recovered/Resolved]
  - Angioedema [Recovered/Resolved]
  - Application site pruritus [Recovered/Resolved]
  - Administration site warmth [Recovered/Resolved]

NARRATIVE: CASE EVENT DATE: 201902
